FAERS Safety Report 4524409-0 (Version None)
Quarter: 2004Q4

REPORT INFORMATION
  Report Type: 
  Country: None (occurrence: None)
  Receive Date: 20041117
  Receipt Date: 20040923
  Transmission Date: 20050328
  Serious: Yes (Other)
  Sender: FDA-Public Use
  Company Number: 2004S1002871

PATIENT
  Age: 73 Year
  Sex: Male

DRUGS (5)
  1. APOKYN [Suspect]
     Indication: MOBILITY DECREASED
     Dosage: 0.2 MG AS TEST DOSE, SUBCUTANEOUS,ONE DOSE
     Route: 058
     Dates: start: 20040923
  2. TRIMETHOBENZAMIDE [Concomitant]
  3. CARBIDOPA AND LEVODOPA [Concomitant]
  4. MULTIVITAMIN [Concomitant]
  5. HERBALS [Concomitant]

REACTIONS (4)
  - BLOOD PRESSURE DIASTOLIC INCREASED [None]
  - BLOOD PRESSURE SYSTOLIC DECREASED [None]
  - FLUSHING [None]
  - HYPERHIDROSIS [None]
